FAERS Safety Report 10929655 (Version 1)
Quarter: 2015Q1

REPORT INFORMATION
  Report Type: Spontaneous
  Country: US (occurrence: None)
  Receive Date: 20150318
  Receipt Date: 20150318
  Transmission Date: 20150721
  Serious: Yes (Other)
  Sender: FDA-Public Use
  Company Number: None

PATIENT
  Age: 32 Year
  Sex: Female
  Weight: 70.31 kg

DRUGS (6)
  1. MENOPUR [Concomitant]
     Active Substance: FOLLICLE STIMULATING HORMONE BETA POLYPEPTIDE\LUTROPIN ALFA
  2. GONAL-F [Concomitant]
     Active Substance: FOLLITROPIN
  3. BRAVELLE [Concomitant]
     Active Substance: FOLLITROPIN\UROFOLLITROPIN
  4. CETROTIDE [Suspect]
     Active Substance: CETRORELIX ACETATE
     Indication: OVULATION INDUCTION
     Dates: start: 20150316, end: 20150317
  5. FOLIC ACID. [Concomitant]
     Active Substance: FOLIC ACID
  6. PRE-NATAL VITAMINS [Concomitant]

REACTIONS (1)
  - Drug ineffective [None]

NARRATIVE: CASE EVENT DATE: 20150316
